FAERS Safety Report 6536908-0 (Version None)
Quarter: 2010Q1

REPORT INFORMATION
  Report Type: 
  Country: None (occurrence: None)
  Receive Date: 20100105
  Receipt Date: 20091224
  Transmission Date: 20100710
  Serious: Yes (Death)
  Sender: FDA-Public Use
  Company Number: CERZ-1000750

PATIENT
  Age: 20 Month
  Sex: Male
  Weight: 7 kg

DRUGS (1)
  1. A8021A02 [Suspect]
     Indication: GAUCHER'S DISEASE
     Dosage: 60 U/KG, Q2W, INTRAVENOUS
     Route: 042
     Dates: start: 20090221, end: 20090606

REACTIONS (5)
  - BRONCHOPNEUMONIA [None]
  - BRONCHOSPASM [None]
  - CYANOSIS [None]
  - DISSEMINATED INTRAVASCULAR COAGULATION [None]
  - GENERAL PHYSICAL HEALTH DETERIORATION [None]
